FAERS Safety Report 6907163-4 (Version None)
Quarter: 2010Q3

REPORT INFORMATION
  Report Type: 
  Country: None (occurrence: None)
  Receive Date: 20100804
  Receipt Date: 20090727
  Transmission Date: 20110219
  Serious: No
  Sender: FDA-Public Use
  Company Number: US-PFIZER INC-2009222540

PATIENT
  Sex: Female
  Weight: 58.957 kg

DRUGS (1)
  1. ZARONTIN [Suspect]
     Indication: CONVULSION
     Dosage: 250 MG, 3X/DAY
     Dates: start: 20070101

REACTIONS (2)
  - FATIGUE [None]
  - VITAMIN B12 DECREASED [None]
